FAERS Safety Report 9075960 (Version 1)
Quarter: 2013Q1

REPORT INFORMATION
  Report Type: Spontaneous
  Country: BR (occurrence: BR)
  Receive Date: 20130130
  Receipt Date: 20130130
  Transmission Date: 20140127
  Serious: Yes (Death, Hospitalization)
  Sender: FDA-Public Use
  Company Number: BR-B.I. PHARMACEUTICALS,INC./RIDGEFIELD-2013-BR-00071BR

PATIENT
  Age: 62 Year
  Sex: Female

DRUGS (3)
  1. MICARDIS [Suspect]
     Indication: HYPERTENSION
     Dosage: 80 MG
     Route: 048
     Dates: start: 2010, end: 20121127
  2. GLIFAGE [Concomitant]
     Indication: DIABETES MELLITUS
  3. ALL OTHER MEDICATION [Concomitant]
     Indication: CARDIAC DISORDER

REACTIONS (6)
  - Cardio-respiratory arrest [Fatal]
  - Emphysema [Fatal]
  - Renal failure acute [Fatal]
  - Monoplegia [Not Recovered/Not Resolved]
  - Back pain [Not Recovered/Not Resolved]
  - Obesity [Fatal]
